FAERS Safety Report 6188715-9 (Version None)
Quarter: 2009Q2

REPORT INFORMATION
  Report Type: 
  Country: None (occurrence: None)
  Receive Date: 20090513
  Receipt Date: 20090504
  Transmission Date: 20091009
  Serious: Yes (Other)
  Sender: FDA-Public Use
  Company Number: GB-WATSON-2009-03190

PATIENT
  Age: 69 Year
  Sex: Male

DRUGS (2)
  1. DIPHENHYDRAMINE HCL [Suspect]
     Indication: DRUG USE FOR UNKNOWN INDICATION
     Dosage: 700 MG, DAILY
     Route: 065
  2. FLUPHENAZINE [Suspect]
     Indication: SCHIZOPHRENIA

REACTIONS (2)
  - DRUG ABUSE [None]
  - DRUG INTERACTION [None]
